FAERS Safety Report 5143295-1 (Version None)
Quarter: 2006Q4

REPORT INFORMATION
  Report Type: 
  Country: None (occurrence: None)
  Receive Date: 20061103
  Receipt Date: 20061025
  Transmission Date: 20070319
  Serious: Yes (Other)
  Sender: FDA-Public Use
  Company Number: 2006UW20765

PATIENT
  Sex: Male

DRUGS (4)
  1. METOPROLOL TARTRATE [Suspect]
     Route: 048
  2. SEROQUEL [Suspect]
     Route: 048
  3. ESTROGENS [Concomitant]
  4. ETHANOL [Concomitant]

REACTIONS (5)
  - BRADYCARDIA [None]
  - COMA [None]
  - HYPOPHOSPHATAEMIA [None]
  - INTENTIONAL OVERDOSE [None]
  - METABOLIC ACIDOSIS [None]
